FAERS Safety Report 9270509 (Version 1)
Quarter: 2013Q2

REPORT INFORMATION
  Report Type: Other
  Country: IT (occurrence: IT)
  Receive Date: 20130503
  Receipt Date: 20130503
  Transmission Date: 20140414
  Serious: Yes (Hospitalization)
  Sender: FDA-Public Use
  Company Number: IT-ACTAVIS-2013-08160

PATIENT
  Age: 74 Year
  Sex: Male

DRUGS (15)
  1. PARACETAMOL (UNKNOWN) [Suspect]
     Indication: PYREXIA
     Dosage: 500 MG, DAILY
     Route: 048
     Dates: start: 20130405, end: 20130406
  2. LEVOFLOXACIN (UNKNOWN) [Suspect]
     Indication: PYREXIA
     Dosage: 500 MG, DAILY
     Route: 048
     Dates: start: 20130405, end: 20130406
  3. INTERFERON ALFA-2A [Suspect]
     Indication: LEUKAEMIA
     Dosage: 1500 DF, TOTAL DOSE
     Route: 058
     Dates: start: 20130405, end: 20130406
  4. LASIX                              /00032601/ [Concomitant]
     Indication: CARDIAC FAILURE
     Route: 065
  5. DILATREND [Concomitant]
     Indication: HYPERTENSION
     Route: 065
  6. NITRODERM [Concomitant]
     Indication: MYOCARDIAL ISCHAEMIA
     Route: 065
  7. ADALAT CRONO [Concomitant]
     Indication: CARDIAC FAILURE
     Dosage: UNK
     Route: 065
  8. ADALAT CRONO [Concomitant]
     Dosage: UNK
  9. CARDIRENE [Concomitant]
     Indication: MYOCARDIAL ISCHAEMIA
     Route: 065
  10. KCL-RETARD [Concomitant]
     Indication: CARDIAC FAILURE
     Route: 065
  11. NOVONORM [Concomitant]
     Indication: DIABETES MELLITUS
     Route: 065
  12. CACIT                              /00751519/ [Concomitant]
     Indication: PRODUCT USED FOR UNKNOWN INDICATION
     Route: 065
  13. ANTRA                              /00661201/ [Concomitant]
     Indication: PROPHYLAXIS
     Route: 065
  14. OMNIC [Concomitant]
     Indication: BENIGN PROSTATIC HYPERPLASIA
     Route: 065
  15. SODIUM BICARBONATE [Concomitant]
     Indication: PRODUCT USED FOR UNKNOWN INDICATION
     Route: 065

REACTIONS (1)
  - Urticaria [Recovered/Resolved]
